FAERS Safety Report 14277847 (Version 1)
Quarter: 2017Q4

REPORT INFORMATION
  Report Type: Spontaneous
  Country: US (occurrence: US)
  Receive Date: 20171212
  Receipt Date: 20171212
  Transmission Date: 20180321
  Serious: No
  Sender: FDA-Public Use
  Company Number: US-B.I. PHARMACEUTICALS,INC./RIDGEFIELD-2017-BI-065289

PATIENT
  Sex: Female

DRUGS (1)
  1. SPIRIVA [Suspect]
     Active Substance: TIOTROPIUM BROMIDE MONOHYDRATE
     Indication: ASTHMA
     Dosage: ADMINISTRATION CORRECT? NR(NOT REPORTED)   ACTION(S) TAKEN WITH PRODUCT: NOT REPORTED
     Route: 065
     Dates: start: 2004

REACTIONS (2)
  - Cough [Unknown]
  - Dyspnoea [Unknown]
